FAERS Safety Report 15930774 (Version 1)
Quarter: 2019Q1

REPORT INFORMATION
  Report Type: Spontaneous
  Country: IT (occurrence: IT)
  Receive Date: 20190207
  Receipt Date: 20190207
  Transmission Date: 20190417
  Serious: Yes (Death, Other)
  Sender: FDA-Public Use
  Company Number: IT-TEVA-2019-IT-1007343

PATIENT
  Age: 81 Year
  Sex: Male

DRUGS (5)
  1. ACARBOSE. [Concomitant]
     Active Substance: ACARBOSE
     Indication: TYPE 2 DIABETES MELLITUS
     Route: 065
  2. METFORMIN [Suspect]
     Active Substance: METFORMIN HYDROCHLORIDE
     Indication: TYPE 2 DIABETES MELLITUS
     Route: 048
  3. LINAGLIPTIN [Concomitant]
     Active Substance: LINAGLIPTIN
     Indication: TYPE 2 DIABETES MELLITUS
     Route: 065
  4. NOREPINEPHRINE. [Suspect]
     Active Substance: NOREPINEPHRINE
     Indication: HAEMODYNAMIC INSTABILITY
     Dosage: ADMINISTERED AT INCREASING DOSES UP TO 1 MICROG/KG/MIN (INITIAL DOSAGE NOT STATED)
     Route: 050
  5. BISOPROLOL [Concomitant]
     Active Substance: BISOPROLOL
     Indication: HYPERTENSION
     Route: 065

REACTIONS (13)
  - Pulseless electrical activity [Fatal]
  - Acute kidney injury [Unknown]
  - Haemodynamic instability [Unknown]
  - Hyperkalaemia [Unknown]
  - Condition aggravated [Unknown]
  - Cardiac arrest [Fatal]
  - Metabolic acidosis [Unknown]
  - Tachycardia [Unknown]
  - Unresponsive to stimuli [Unknown]
  - Anuria [Unknown]
  - Drug ineffective [Unknown]
  - Electrolyte imbalance [Unknown]
  - Dehydration [Unknown]
